FAERS Safety Report 10529028 (Version 4)
Quarter: 2015Q1

REPORT INFORMATION
  Report Type: Report from Study
  Country: JP (occurrence: JP)
  Receive Date: 20141020
  Receipt Date: 20150209
  Transmission Date: 20150720
  Serious: Yes (Life-Threatening, Hospitalization, Other)
  Sender: FDA-Public Use
  Company Number: JP-ABBVIE-14K-087-1296703-00

PATIENT
  Age: 78 Year
  Sex: Male
  Weight: 53 kg

DRUGS (21)
  1. MINOCYCLINE HYDROCHLORIDE. [Concomitant]
     Active Substance: MINOCYCLINE HYDROCHLORIDE
     Indication: ANTIBIOTIC THERAPY
     Route: 048
     Dates: start: 20131031, end: 20131114
  2. HUMIRA [Suspect]
     Active Substance: ADALIMUMAB
     Indication: RHEUMATOID ARTHRITIS
     Route: 058
     Dates: start: 20130711, end: 20130919
  3. SORELMON [Concomitant]
     Active Substance: DICLOFENAC SODIUM
     Indication: ANTIINFLAMMATORY THERAPY
  4. LOXOPROFEN SODIUM [Concomitant]
     Active Substance: LOXOPROFEN SODIUM
     Indication: ANALGESIC THERAPY
     Route: 048
     Dates: start: 20140415, end: 20141002
  5. LOMEFLOXACIN HYDROCHLORIDE [Concomitant]
     Active Substance: LOMEFLOXACIN HYDROCHLORIDE
     Indication: ANTIBIOTIC THERAPY
     Route: 048
     Dates: start: 20131017, end: 20131030
  6. BETAMETHASONE ACETATE W/BETAMETHASONE SODIUM [Concomitant]
     Indication: ANTIINFLAMMATORY THERAPY
     Route: 014
  7. HUMIRA [Suspect]
     Active Substance: ADALIMUMAB
     Route: 058
     Dates: start: 20140422, end: 20140422
  8. HUMIRA [Suspect]
     Active Substance: ADALIMUMAB
     Route: 058
     Dates: start: 20140507, end: 20140924
  9. PREDNISOLONE. [Concomitant]
     Active Substance: PREDNISOLONE
     Indication: RHEUMATIC DISORDER
     Dates: start: 20130613, end: 20130710
  10. DICLOFENAC SODIUM. [Concomitant]
     Active Substance: DICLOFENAC SODIUM
     Indication: ANALGESIC THERAPY
     Dates: start: 20131214, end: 20140414
  11. PREDNISOLONE. [Concomitant]
     Active Substance: PREDNISOLONE
     Dates: start: 20140910, end: 20141002
  12. CEFCAPENE PIVOXIL HYDROCHLORIDE HYDRATE [Concomitant]
     Active Substance: CEFCAPENE PIVOXIL HYDROCHLORIDE HYDRATE
     Indication: ANTIBIOTIC THERAPY
     Dates: start: 20130927, end: 20131004
  13. LIDOCAINE. [Concomitant]
     Active Substance: LIDOCAINE
     Indication: PRODUCT USED FOR UNKNOWN INDICATION
  14. HUMIRA [Suspect]
     Active Substance: ADALIMUMAB
     Indication: BEHCET^S SYNDROME
     Route: 058
     Dates: start: 20130613, end: 20130627
  15. PIPERACILLIN AND TAZOBACTAM [Suspect]
     Active Substance: PIPERACILLIN SODIUM\TAZOBACTAM SODIUM
     Indication: PRODUCT USED FOR UNKNOWN INDICATION
     Dosage: DRIP INFUSION
     Route: 065
     Dates: end: 20141013
  16. PREDNISOLONE. [Concomitant]
     Active Substance: PREDNISOLONE
     Indication: ANTIINFLAMMATORY THERAPY
     Dates: start: 20130711, end: 20140909
  17. SORELMON [Concomitant]
     Active Substance: DICLOFENAC SODIUM
     Indication: ANALGESIC THERAPY
     Route: 048
     Dates: start: 20130829, end: 20130913
  18. HUMIRA [Suspect]
     Active Substance: ADALIMUMAB
     Route: 058
     Dates: start: 20131010, end: 20131017
  19. GARENOXACIN MESILATE [Suspect]
     Active Substance: GARENOXACIN MESYLATE
     Indication: PRODUCT USED FOR UNKNOWN INDICATION
     Route: 048
     Dates: start: 201410, end: 20141022
  20. PIPERACILLIN AND TAZOBACTAM [Suspect]
     Active Substance: PIPERACILLIN SODIUM\TAZOBACTAM SODIUM
     Dosage: DRIP INFUSION
     Route: 065
     Dates: start: 20141019, end: 20141022
  21. BETAMETHASONE SODIUM PHOSPHATE [Concomitant]
     Active Substance: BETAMETHASONE SODIUM PHOSPHATE
     Indication: PRODUCT USED FOR UNKNOWN INDICATION

REACTIONS (16)
  - Pneumonia [Not Recovered/Not Resolved]
  - Acute respiratory failure [Recovering/Resolving]
  - Staphylococcal infection [Unknown]
  - White blood cell count increased [Unknown]
  - Hepatic function abnormal [Unknown]
  - Atrial fibrillation [Not Recovered/Not Resolved]
  - Lung abscess [Not Recovered/Not Resolved]
  - Rash [Unknown]
  - Chlamydia test positive [Unknown]
  - Post procedural infection [Unknown]
  - Drug hypersensitivity [Unknown]
  - Cardiac failure [Not Recovered/Not Resolved]
  - White blood cell count decreased [Unknown]
  - Peripheral swelling [Not Recovered/Not Resolved]
  - Arthritis bacterial [Recovered/Resolved]
  - Pain [Not Recovered/Not Resolved]

NARRATIVE: CASE EVENT DATE: 20131017
